FAERS Safety Report 4754217-7 (Version None)
Quarter: 2005Q3

REPORT INFORMATION
  Report Type: 
  Country: None (occurrence: None)
  Receive Date: 20050825
  Receipt Date: 20050815
  Transmission Date: 20060218
  Serious: Yes (Other)
  Sender: FDA-Public Use
  Company Number: 27222

PATIENT
  Age: 62 Year
  Sex: Female

DRUGS (4)
  1. ALDARA [Suspect]
     Indication: ACTINIC KERATOSIS
     Dosage: 3 IN 1 WEEK (S)) TOPICAL
     Route: 061
     Dates: start: 20050727, end: 20050806
  2. ARTHROTEC [Concomitant]
  3. TYLENOL [Concomitant]
  4. TEGRETOL [Concomitant]

REACTIONS (2)
  - PEMPHIGUS [None]
  - SKIN LESION [None]
